FAERS Safety Report 11848109 (Version 1)
Quarter: 2015Q4

REPORT INFORMATION
  Report Type: Spontaneous
  Country: US (occurrence: US)
  Receive Date: 20151217
  Receipt Date: 20151217
  Transmission Date: 20160305
  Serious: Yes (Death, Other)
  Sender: FDA-Public Use
  Company Number: US-BRISTOL-MYERS SQUIBB COMPANY-BMS-2015-087795

PATIENT
  Sex: Female
  Weight: 61.22 kg

DRUGS (3)
  1. OPDIVO [Suspect]
     Active Substance: NIVOLUMAB
     Dosage: 182 MG, UNK
     Route: 042
     Dates: start: 20151022
  2. OPDIVO [Suspect]
     Active Substance: NIVOLUMAB
     Dosage: 184 MG, UNK
     Route: 042
     Dates: start: 20151106
  3. OPDIVO [Suspect]
     Active Substance: NIVOLUMAB
     Indication: BILE DUCT CANCER
     Dosage: 177 MG, UNK
     Route: 042
     Dates: start: 20151008

REACTIONS (2)
  - Off label use [Unknown]
  - Death [Fatal]
